FAERS Safety Report 6930417-2 (Version None)
Quarter: 2010Q3

REPORT INFORMATION
  Report Type: 
  Country: None (occurrence: None)
  Receive Date: 20100818
  Receipt Date: 20100804
  Transmission Date: 20110219
  Serious: Yes (Hospitalization)
  Sender: FDA-Public Use
  Company Number: BR-MEDIMMUNE-MEDI-0011480

PATIENT
  Sex: Male
  Weight: 5.7 kg

DRUGS (7)
  1. SYNAGIS [Suspect]
     Route: 030
     Dates: start: 20100528
  2. SYNAGIS [Suspect]
     Indication: LUNG DISORDER
  3. RANITIDINE HYDROCHLORIDE [Concomitant]
     Route: 048
     Dates: start: 20090927
  4. PROTOVIT [Concomitant]
     Route: 048
     Dates: start: 20090927
  5. DOMPERIDONE [Concomitant]
     Route: 048
     Dates: start: 20090927
  6. FERROUS SULFATE [Concomitant]
     Route: 048
     Dates: start: 20090927
  7. SODIUM CHLORIDE [Concomitant]
     Route: 045
     Dates: start: 20091201

REACTIONS (3)
  - COUGH [None]
  - INFLUENZA [None]
  - PNEUMONIA [None]
